FAERS Safety Report 25767621 (Version 1)
Quarter: 2025Q3

REPORT INFORMATION
  Report Type: Spontaneous
  Country: US (occurrence: US)
  Receive Date: 20250905
  Receipt Date: 20250905
  Transmission Date: 20251021
  Serious: Yes (Hospitalization, Other)
  Sender: ORGANON
  Company Number: US-ORGANON-O2509USA000201

PATIENT
  Age: 76 Year
  Sex: Male

DRUGS (5)
  1. SINEMET [Suspect]
     Active Substance: CARBIDOPA\LEVODOPA
     Indication: Parkinson^s disease
     Dosage: TWO TABLETS OF 25 MG/100 MG FOUR TIMES A DAY
     Route: 048
  2. SINEMET [Suspect]
     Active Substance: CARBIDOPA\LEVODOPA
     Dosage: TWO 25 MG/100 MG TABLETS FIVE TIMES PER DAY
     Route: 048
  3. ROSUVASTATIN [Concomitant]
     Active Substance: ROSUVASTATIN
  4. SILDENAFIL [Concomitant]
     Active Substance: SILDENAFIL
  5. CLOPIDOGREL [Concomitant]
     Active Substance: CLOPIDOGREL BISULFATE

REACTIONS (3)
  - Seizure [Recovered/Resolved]
  - Vitamin B6 deficiency [Recovered/Resolved]
  - Therapeutic response decreased [Unknown]
